FAERS Safety Report 9524380 (Version 1)
Quarter: 2013Q3

REPORT INFORMATION
  Report Type: Spontaneous
  Country: US (occurrence: None)
  Receive Date: 20130912
  Receipt Date: 20130912
  Transmission Date: 20140515
  Serious: Yes (Life-Threatening, Hospitalization)
  Sender: FDA-Public Use
  Company Number: None

PATIENT
  Age: 32 None
  Sex: Male

DRUGS (2)
  1. TYLENOL [Suspect]
     Indication: CORNEAL DISORDER
     Dosage: EXTRA STRENGTH 2 SOMETIMES 3 X DAY MOUTH
     Route: 048
     Dates: start: 201306, end: 201307
  2. TYLENOL [Suspect]
     Indication: SCRATCH
     Dosage: EXTRA STRENGTH 2 SOMETIMES 3 X DAY MOUTH
     Route: 048
     Dates: start: 201306, end: 201307

REACTIONS (1)
  - Acute hepatic failure [None]
